FAERS Safety Report 8515212-5 (Version None)
Quarter: 2012Q3

REPORT INFORMATION
  Report Type: 
  Country: None (occurrence: None)
  Receive Date: 20120717
  Receipt Date: 20120710
  Transmission Date: 20120928
  Serious: Yes (Hospitalization)
  Sender: FDA-Public Use
  Company Number: FR-BRISTOL-MYERS SQUIBB COMPANY-16756934

PATIENT
  Age: 3 Decade
  Sex: Male

DRUGS (5)
  1. LORAZEPAM [Concomitant]
     Route: 048
  2. ABILIFY [Suspect]
     Indication: SCHIZOPHRENIA
     Route: 048
  3. IMOVANE [Concomitant]
     Route: 048
  4. TRANXENE [Concomitant]
     Route: 048
  5. PRAZEPAM [Concomitant]
     Route: 048

REACTIONS (1)
  - HAEMOLYTIC ANAEMIA [None]
